FAERS Safety Report 22022789 (Version 2)
Quarter: 2023Q1

REPORT INFORMATION
  Report Type: Report from Study
  Country: US (occurrence: US)
  Receive Date: 20230222
  Receipt Date: 20230301
  Transmission Date: 20230417
  Serious: Yes (Hospitalization)
  Sender: FDA-Public Use
  Company Number: US-MIRATI-MT2023CT03512

PATIENT

DRUGS (11)
  1. ADAGRASIB [Suspect]
     Active Substance: ADAGRASIB
     Indication: Colorectal cancer
     Dosage: 400 MG, BID
     Route: 048
     Dates: start: 20230131, end: 20230210
  2. ERBITUX [Suspect]
     Active Substance: CETUXIMAB
     Indication: Colorectal cancer
     Dosage: 500 MG/M2 (855 MG), Q2WK
     Route: 042
     Dates: start: 20230131, end: 20230131
  3. METOPROLOL TARTRATE [Concomitant]
     Active Substance: METOPROLOL TARTRATE
     Indication: Hypertension
     Dosage: 50 MG, BID
     Route: 048
     Dates: start: 2021
  4. AMLODIPINE [Concomitant]
     Active Substance: AMLODIPINE BESYLATE
     Indication: Hypertension
     Dosage: 5 MG, QD
     Route: 048
     Dates: start: 2021
  5. GABAPENTIN [Concomitant]
     Active Substance: GABAPENTIN
     Indication: Peripheral sensory neuropathy
     Dosage: 300 MG, QD
     Route: 048
     Dates: start: 2022
  6. ELIQUIS [Concomitant]
     Active Substance: APIXABAN
     Indication: Embolism
     Dosage: 5 MG, BID
     Route: 048
     Dates: start: 202211
  7. COMPAZINE [Concomitant]
     Active Substance: PROCHLORPERAZINE MALEATE
     Indication: Nausea
     Dosage: 10 MG, QID PRN
     Route: 048
     Dates: start: 20230131
  8. LOPERAMIDE [Concomitant]
     Active Substance: LOPERAMIDE
     Indication: Diarrhoea
     Dosage: 1 MG, BID PRN
     Route: 048
     Dates: start: 20230206
  9. ATROPINE SULFATE [Concomitant]
     Active Substance: ATROPINE SULFATE
     Indication: Diarrhoea
     Dosage: 2.5-0.025 MG, QID
     Route: 048
     Dates: start: 20230206
  10. ONDANSETRON [Concomitant]
     Active Substance: ONDANSETRON
     Indication: Nausea
     Dosage: 4 MG, QID PRN
     Route: 048
     Dates: start: 20230207
  11. ONDANSETRON [Concomitant]
     Active Substance: ONDANSETRON
     Indication: Vomiting

REACTIONS (3)
  - Asthenia [Recovered/Resolved]
  - Seizure [Recovered/Resolved]
  - Metabolic acidosis [Recovered/Resolved]

NARRATIVE: CASE EVENT DATE: 20230210
